FAERS Safety Report 10028843 (Version 2)
Quarter: 2014Q1

REPORT INFORMATION
  Report Type: Report from Study
  Country: LB (occurrence: LB)
  Receive Date: 20140321
  Receipt Date: 20140321
  Transmission Date: 20141002
  Serious: Yes (Death, Hospitalization)
  Sender: FDA-Public Use
  Company Number: PHHY2013LB100188

PATIENT
  Age: 80 Year
  Sex: Male

DRUGS (2)
  1. TASIGNA [Suspect]
     Dosage: 800 MG, PER DAY
     Route: 048
     Dates: start: 20130823
  2. TASIGNA [Suspect]
     Dosage: 200 MG, PER DAY
     Route: 048
     Dates: start: 201401

REACTIONS (9)
  - Myocardial infarction [Fatal]
  - Leukocytosis [Unknown]
  - Anaemia [Not Recovered/Not Resolved]
  - Thrombocytopenia [Unknown]
  - Agitation [Not Recovered/Not Resolved]
  - Aggression [Not Recovered/Not Resolved]
  - Constipation [Unknown]
  - Oedema peripheral [Not Recovered/Not Resolved]
  - Decreased appetite [Not Recovered/Not Resolved]
